FAERS Safety Report 11648811 (Version 1)
Quarter: 2015Q4

REPORT INFORMATION
  Report Type: Spontaneous
  Country: US (occurrence: US)
  Receive Date: 20151021
  Receipt Date: 20151021
  Transmission Date: 20160304
  Serious: Yes (Other)
  Sender: FDA-Public Use
  Company Number: US-ASTELLAS-2015US038394

PATIENT
  Sex: Male

DRUGS (1)
  1. TARCEVA [Suspect]
     Active Substance: ERLOTINIB HYDROCHLORIDE
     Indication: LUNG NEOPLASM MALIGNANT
     Route: 048
     Dates: start: 20150622, end: 201509

REACTIONS (4)
  - Haemoptysis [Recovered/Resolved]
  - Carcinoembryonic antigen decreased [Unknown]
  - Rash [Not Recovered/Not Resolved]
  - Cyst [Unknown]
